FAERS Safety Report 14076502 (Version 2)
Quarter: 2018Q2

REPORT INFORMATION
  Report Type: Spontaneous
  Country: CN (occurrence: CN)
  Receive Date: 20171011
  Receipt Date: 20180411
  Transmission Date: 20180711
  Serious: Yes (Other)
  Sender: FDA-Public Use
  Company Number: CN-UCBSA-2017039932

PATIENT

DRUGS (4)
  1. KEPPRA [Suspect]
     Active Substance: LEVETIRACETAM
     Indication: EPILEPSY
     Dosage: 500 MG, 2X/DAY (BID)
     Route: 048
  2. KEPPRA [Suspect]
     Active Substance: LEVETIRACETAM
     Dosage: 1000 MG, 2X/DAY (BID)
     Route: 048
  3. SODIUM VALPROATE [Concomitant]
     Active Substance: VALPROATE SODIUM
     Indication: EPILEPSY
     Dosage: EXTENDED RELEASE MIMETIC TABLET; 1 DF, 2X/DAY (BID)
  4. KEPPRA [Suspect]
     Active Substance: LEVETIRACETAM
     Dosage: 1500 MG, 2X/DAY (BID)
     Route: 048

REACTIONS (6)
  - Thrombocytopenia [Unknown]
  - Dizziness [Unknown]
  - Decreased appetite [Unknown]
  - Somnolence [Unknown]
  - Diarrhoea [Unknown]
  - Fatigue [Unknown]
